FAERS Safety Report 6705533-0 (Version None)
Quarter: 2010Q2

REPORT INFORMATION
  Report Type: 
  Country: None (occurrence: None)
  Receive Date: 20100503
  Receipt Date: 20100423
  Transmission Date: 20101027
  Serious: No
  Sender: FDA-Public Use
  Company Number: US-BIOGENIDEC-2010BI014034

PATIENT
  Age: 66 Year
  Sex: Female

DRUGS (2)
  1. TYSABRI [Suspect]
     Indication: MULTIPLE SCLEROSIS
     Route: 042
     Dates: start: 20070904, end: 20080516
  2. TYSABRI [Suspect]
     Route: 042
     Dates: start: 20080821

REACTIONS (2)
  - INFUSION SITE PAIN [None]
  - MEMORY IMPAIRMENT [None]
